FAERS Safety Report 23167790 (Version 1)
Quarter: 2023Q4

REPORT INFORMATION
  Report Type: Spontaneous
  Country: PT (occurrence: PT)
  Receive Date: 20231109
  Receipt Date: 20231109
  Transmission Date: 20240109
  Serious: Yes (Hospitalization, Other)
  Sender: FDA-Public Use
  Company Number: PT-LEO Pharma-364823

PATIENT
  Age: 68 Year
  Sex: Male

DRUGS (1)
  1. BRODALUMAB [Suspect]
     Active Substance: BRODALUMAB
     Indication: Psoriasis
     Dosage: WITH PASI 100 FOR 3 YEARS AND SIX MONTHS
     Route: 065

REACTIONS (2)
  - Cerebrovascular accident [Unknown]
  - Psoriasis [Not Recovered/Not Resolved]
